FAERS Safety Report 20859406 (Version 2)
Quarter: 2022Q2

REPORT INFORMATION
  Report Type: Spontaneous
  Country: US (occurrence: US)
  Receive Date: 20220523
  Receipt Date: 20220607
  Transmission Date: 20220720
  Serious: No
  Sender: FDA-Public Use
  Company Number: US-GLAXOSMITHKLINE-US2022080453

PATIENT
  Age: 45 Year
  Sex: Female

DRUGS (2)
  1. ZEJULA [Suspect]
     Active Substance: NIRAPARIB
     Indication: Ovarian cancer
     Dosage: 300 MG, QD
     Route: 048
     Dates: start: 202205, end: 20220507
  2. ZEJULA [Suspect]
     Active Substance: NIRAPARIB
     Dosage: 200 MG, QD
     Route: 048

REACTIONS (12)
  - Vomiting [Unknown]
  - Nausea [Unknown]
  - Feeding disorder [Unknown]
  - Hysterectomy [Unknown]
  - Vaginal haemorrhage [Unknown]
  - Pain [Unknown]
  - Fatigue [Unknown]
  - Adverse drug reaction [Unknown]
  - Tumour marker increased [Unknown]
  - Blood pressure decreased [Unknown]
  - Constipation [Unknown]
  - Product monitoring error [Unknown]

NARRATIVE: CASE EVENT DATE: 20220501
